FAERS Safety Report 18814990 (Version 1)
Quarter: 2021Q1

REPORT INFORMATION
  Report Type: Spontaneous
  Country: US (occurrence: US)
  Receive Date: 20210129
  Receipt Date: 20210129
  Transmission Date: 20210419
  Serious: No
  Sender: FDA-Public Use
  Company Number: None

PATIENT
  Age: 57 Year
  Sex: Male

DRUGS (2)
  1. CABOMETYX [Suspect]
     Active Substance: CABOZANTINIB S-MALATE
     Indication: HEPATIC CANCER
     Route: 048
     Dates: start: 20201124
  2. B6 NATURAL TAB [Concomitant]

REACTIONS (2)
  - Hernia [None]
  - Thrombosis [None]

NARRATIVE: CASE EVENT DATE: 20210128
